FAERS Safety Report 16127526 (Version 4)
Quarter: 2020Q1

REPORT INFORMATION
  Report Type: Spontaneous
  Country: US (occurrence: US)
  Receive Date: 20190328
  Receipt Date: 20200103
  Transmission Date: 20200409
  Serious: No
  Sender: FDA-Public Use
  Company Number: US-PFIZER INC-2019129867

PATIENT
  Age: 24 Year
  Sex: Male
  Weight: 55.3 kg

DRUGS (2)
  1. EPLERENONE. [Suspect]
     Active Substance: EPLERENONE
     Indication: DUCHENNE MUSCULAR DYSTROPHY
  2. EPLERENONE. [Suspect]
     Active Substance: EPLERENONE
     Indication: CARDIAC DISORDER
     Dosage: 25 MG, 1X/DAY
     Route: 048

REACTIONS (2)
  - Drug ineffective for unapproved indication [Unknown]
  - Off label use [Unknown]
